FAERS Safety Report 4922909-2 (Version None)
Quarter: 2006Q1

REPORT INFORMATION
  Report Type: 
  Country: None (occurrence: None)
  Receive Date: 20060224
  Receipt Date: 20050218
  Transmission Date: 20060701
  Serious: Yes (Hospitalization)
  Sender: FDA-Public Use
  Company Number: US-MERCK-0502USA02983

PATIENT
  Age: 54 Year
  Sex: Female
  Weight: 111 kg

DRUGS (10)
  1. VIOXX [Suspect]
     Indication: OSTEOARTHRITIS
     Route: 048
     Dates: start: 19990501, end: 20040101
  2. LASIX [Concomitant]
     Route: 065
  3. ELAVIL [Concomitant]
     Route: 048
  4. DARVOCET-N 50 [Concomitant]
     Route: 065
  5. VITAMINS (UNSPECIFIED) [Concomitant]
     Route: 065
  6. IMITREX [Concomitant]
     Route: 065
  7. FLEXERIL [Concomitant]
     Route: 048
  8. TYLENOL (CAPLET) [Concomitant]
     Route: 065
  9. ESTROGENS (UNSPECIFIED) [Concomitant]
     Route: 065
  10. [COMPOSITION UNSPECIFIED] [Concomitant]
     Route: 065

REACTIONS (2)
  - KNEE ARTHROPLASTY [None]
  - MYOCARDIAL INFARCTION [None]
